FAERS Safety Report 12605160 (Version 1)
Quarter: 2016Q3

REPORT INFORMATION
  Report Type: Spontaneous
  Country: FR (occurrence: FR)
  Receive Date: 20160729
  Receipt Date: 20160729
  Transmission Date: 20161109
  Serious: Yes (Hospitalization)
  Sender: FDA-Public Use
  Company Number: FR-009507513-1607FRA011729

PATIENT
  Age: 60 Year
  Sex: Female

DRUGS (9)
  1. JANUMET [Suspect]
     Active Substance: METFORMIN HYDROCHLORIDE\SITAGLIPTIN PHOSPHATE
     Indication: TYPE 2 DIABETES MELLITUS
     Dosage: UNK
     Route: 048
     Dates: start: 20160711
  2. TOUJEO [Suspect]
     Active Substance: INSULIN GLARGINE
     Indication: TYPE 2 DIABETES MELLITUS
     Dosage: 34 IU, QAM
     Route: 058
     Dates: start: 20160711, end: 20160713
  3. TAHOR [Concomitant]
     Active Substance: ATORVASTATIN CALCIUM
  4. AVLOCARDYL [Concomitant]
     Active Substance: PROPRANOLOL HYDROCHLORIDE
  5. MODOPAR [Concomitant]
     Active Substance: BENSERAZIDE HYDROCHLORIDE\LEVODOPA
  6. DIAMICRON [Concomitant]
     Active Substance: GLICLAZIDE
  7. XELEVIA [Concomitant]
     Active Substance: SITAGLIPTIN PHOSPHATE
  8. SIFROL [Concomitant]
     Active Substance: PRAMIPEXOLE
  9. PARKINANE RETARD [Concomitant]
     Active Substance: TRIHEXYPHENIDYL HYDROCHLORIDE

REACTIONS (4)
  - Somnolence [Recovered/Resolved]
  - Confusional state [Recovered/Resolved]
  - Disturbance in attention [Recovered/Resolved]
  - Disorientation [Recovered/Resolved]

NARRATIVE: CASE EVENT DATE: 20160713
